FAERS Safety Report 21638487 (Version 1)
Quarter: 2022Q4

REPORT INFORMATION
  Report Type: Report from Study
  Country: US (occurrence: US)
  Receive Date: 20221124
  Receipt Date: 20221124
  Transmission Date: 20230113
  Serious: No
  Sender: FDA-Public Use
  Company Number: US-ABBVIE-4163779

PATIENT
  Sex: Female

DRUGS (4)
  1. HUMIRA [Suspect]
     Active Substance: ADALIMUMAB
     Indication: Hidradenitis
     Route: 058
  2. Covid-19 vaccine [Concomitant]
     Indication: COVID-19 immunisation
     Dosage: TRIAL NOVA VAXX ?1ST DOSE?1 IN ONCE
     Route: 030
     Dates: start: 2021, end: 2021
  3. Covid-19 vaccine [Concomitant]
     Indication: COVID-19 immunisation
     Dosage: TRIAL NOVA VAXX ?2ND DOSE?1 IN ONCE
     Route: 030
     Dates: start: 202105, end: 202105
  4. Covid-19 vaccine [Concomitant]
     Indication: COVID-19 immunisation
     Dosage: TRIAL NOVA VAXX ?3RD DOSE?1 IN ONCE
     Route: 030
     Dates: start: 20220215, end: 20220215

REACTIONS (1)
  - Injection site pruritus [Not Recovered/Not Resolved]
